FAERS Safety Report 12299258 (Version 1)
Quarter: 2016Q2

REPORT INFORMATION
  Report Type: Spontaneous
  Country: US (occurrence: None)
  Receive Date: 20160422
  Receipt Date: 20160422
  Transmission Date: 20160815
  Serious: Yes (Hospitalization, Other)
  Sender: FDA-Public Use
  Company Number: None

PATIENT
  Age: 24 Year
  Sex: Female
  Weight: 82.5 kg

DRUGS (27)
  1. DICLOFENAC [Concomitant]
     Active Substance: DICLOFENAC
  2. ZOLPIDEM [Concomitant]
     Active Substance: ZOLPIDEM\ZOLPIDEM TARTRATE
  3. HYDROXYCHLOROQUINE [Concomitant]
     Active Substance: HYDROXYCHLOROQUINE
  4. LAMIVUDINE. [Concomitant]
     Active Substance: LAMIVUDINE
  5. SPIRONOLACTONE. [Concomitant]
     Active Substance: SPIRONOLACTONE
  6. DEXAMETHASONE. [Concomitant]
     Active Substance: DEXAMETHASONE
  7. METHYLPREDNISOLONE. [Concomitant]
     Active Substance: METHYLPREDNISOLONE
  8. ERGOCALCIFEROL. [Concomitant]
     Active Substance: ERGOCALCIFEROL
  9. LABETALOL [Concomitant]
     Active Substance: LABETALOL\LABETALOL HYDROCHLORIDE
  10. HYDRALAZINE [Concomitant]
     Active Substance: HYDRALAZINE HYDROCHLORIDE
  11. LORAZEPAM. [Concomitant]
     Active Substance: LORAZEPAM
  12. RITUXIMAB [Suspect]
     Active Substance: RITUXIMAB
     Indication: LUPUS NEPHRITIS
     Route: 042
     Dates: start: 20160301
  13. CYCLOPHOSPHAMIDE. [Suspect]
     Active Substance: CYCLOPHOSPHAMIDE
     Indication: LUPUS NEPHRITIS
     Route: 042
     Dates: start: 20160302
  14. AMLODIPINE [Concomitant]
     Active Substance: AMLODIPINE BESYLATE
  15. ATOVAQUONE. [Concomitant]
     Active Substance: ATOVAQUONE
  16. MESNA. [Concomitant]
     Active Substance: MESNA
  17. CALCIUM CARBONATE. [Concomitant]
     Active Substance: CALCIUM CARBONATE
  18. HYDROMORPHONE [Concomitant]
     Active Substance: HYDROMORPHONE
  19. PREDNISONE. [Concomitant]
     Active Substance: PREDNISONE
  20. CLONIDINE. [Concomitant]
     Active Substance: CLONIDINE
  21. DULOXETINE DR [Concomitant]
     Active Substance: DULOXETINE
  22. DIPHENHYDRAMINE. [Concomitant]
     Active Substance: DIPHENHYDRAMINE
  23. DOCUSATE [Concomitant]
     Active Substance: DOCUSATE
  24. MORPHINE [Concomitant]
     Active Substance: MORPHINE
  25. LEVETIRACETAM. [Concomitant]
     Active Substance: LEVETIRACETAM
  26. HEPARIN [Concomitant]
     Active Substance: HEPARIN SODIUM
  27. ONDANSETRON [Concomitant]
     Active Substance: ONDANSETRON

REACTIONS (7)
  - Drug ineffective [None]
  - Hypertension [None]
  - Pancreatitis [None]
  - Chills [None]
  - Vomiting [None]
  - Weight decreased [None]
  - Tachycardia [None]

NARRATIVE: CASE EVENT DATE: 20160305
